FAERS Safety Report 14312987 (Version 1)
Quarter: 2017Q4

REPORT INFORMATION
  Report Type: Spontaneous
  Country: US (occurrence: US)
  Receive Date: 20171220
  Receipt Date: 20171220
  Transmission Date: 20180321
  Serious: Yes (Hospitalization)
  Sender: FDA-Public Use
  Company Number: None

PATIENT
  Sex: Male

DRUGS (12)
  1. HYDROCODONE [Concomitant]
     Active Substance: HYDROCODONE
  2. ALLOPURINOL. [Concomitant]
     Active Substance: ALLOPURINOL
  3. ISOSORBIDE. [Concomitant]
     Active Substance: ISOSORBIDE
  4. HYDROCHLOROTHIAZIDE. [Concomitant]
     Active Substance: HYDROCHLOROTHIAZIDE
  5. POTASSIUM [Concomitant]
     Active Substance: POTASSIUM
  6. ASPIRIN. [Concomitant]
     Active Substance: ASPIRIN
  7. ATORVASTATIN [Concomitant]
     Active Substance: ATORVASTATIN
  8. LORAZEPAM. [Concomitant]
     Active Substance: LORAZEPAM
  9. VALSARTAN. [Concomitant]
     Active Substance: VALSARTAN
  10. IMATINIB, 400 MG [Suspect]
     Active Substance: IMATINIB
  11. IMATINIB, 400 MG [Suspect]
     Active Substance: IMATINIB
     Indication: CHRONIC MYELOID LEUKAEMIA
     Route: 048
     Dates: start: 20161125
  12. NITROGLYCER [Concomitant]

REACTIONS (2)
  - Catheterisation cardiac [None]
  - Drug dose omission [None]

NARRATIVE: CASE EVENT DATE: 2017
